FAERS Safety Report 12309037 (Version 2)
Quarter: 2016Q4

REPORT INFORMATION
  Report Type: Spontaneous
  Country: US (occurrence: US)
  Receive Date: 20160427
  Receipt Date: 20161116
  Transmission Date: 20170207
  Serious: Yes (Hospitalization, Other)
  Sender: FDA-Public Use
  Company Number: US-BRISTOL-MYERS SQUIBB COMPANY-BMS-2016-030598

PATIENT
  Sex: Female

DRUGS (1)
  1. SPRYCEL [Suspect]
     Active Substance: DASATINIB
     Indication: CHRONIC MYELOID LEUKAEMIA
     Dosage: 70 MG, QD
     Route: 065
     Dates: start: 20160425

REACTIONS (7)
  - Dyspnoea [Unknown]
  - Asthenia [Unknown]
  - Prescribed underdose [Unknown]
  - Weight increased [Unknown]
  - Swelling [Unknown]
  - Oedema [Unknown]
  - Pneumonia [Unknown]
